FAERS Safety Report 6581585-6 (Version None)
Quarter: 2010Q1

REPORT INFORMATION
  Report Type: 
  Country: None (occurrence: None)
  Receive Date: 20100215
  Receipt Date: 20100203
  Transmission Date: 20100710
  Serious: Yes (Hospitalization)
  Sender: FDA-Public Use
  Company Number: IT-ELI_LILLY_AND_COMPANY-IT200911005181

PATIENT
  Sex: Female
  Weight: 77 kg

DRUGS (9)
  1. GEMCITABINE HCL [Suspect]
     Indication: BREAST CANCER METASTATIC
     Dosage: 1250 MG/M2, DAYS 1+8 EVERY 3 WEEKS
     Route: 042
     Dates: start: 20091029
  2. PACLITAXEL [Suspect]
     Indication: BREAST CANCER METASTATIC
     Dosage: 175 MG/M2, DAY 1 EVERY 3 WEEKS
     Route: 042
     Dates: start: 20091029
  3. PANTOPAN [Concomitant]
     Dates: start: 20090818
  4. BLOPRESID [Concomitant]
     Dates: start: 20000101
  5. DELTACORTENE [Concomitant]
     Dates: start: 20091028, end: 20091028
  6. TRIMETON [Concomitant]
     Dates: start: 20091029, end: 20091029
  7. SOLU-CORTEF [Concomitant]
     Dates: start: 20091029, end: 20091029
  8. RANIDIL [Concomitant]
     Dates: start: 20091029, end: 20091029
  9. KYTRIL [Concomitant]
     Dates: start: 20091029, end: 20091029

REACTIONS (1)
  - NEUTROPENIC INFECTION [None]
